FAERS Safety Report 8156623-X (Version None)
Quarter: 2012Q1

REPORT INFORMATION
  Report Type: 
  Country: None (occurrence: None)
  Receive Date: 20120216
  Receipt Date: 20120208
  Transmission Date: 20120608
  Serious: Yes (Hospitalization)
  Sender: FDA-Public Use
  Company Number: DKLU1076498

PATIENT
  Age: 15 Month
  Sex: Female

DRUGS (5)
  1. ONFI (CLOBAZAM) (CLOBAZAM) (5 MG, TABLET) [Suspect]
     Indication: INFANTILE SPASMS
     Dosage: 5 MG MILLIGRAM(S), 1 IN 1 D, ORAL
     Route: 048
     Dates: start: 20120128
  2. ACTH [Suspect]
     Indication: INFANTILE SPASMS
     Dosage: 0.43 ML MILLILITRE(S), 2 IN 1 D
     Dates: start: 20120117, end: 20120126
  3. AMPICILLIN [Concomitant]
  4. SABRIL [Suspect]
     Indication: INFANTILE SPASMS
     Dosage: SEE IMAGE
     Route: 048
     Dates: start: 20110513
  5. ZANTAC [Concomitant]

REACTIONS (7)
  - IRRITABILITY [None]
  - DEHYDRATION [None]
  - VOMITING [None]
  - DYSPNOEA [None]
  - VIRAL INFECTION [None]
  - DECREASED APPETITE [None]
  - HEART RATE INCREASED [None]
